FAERS Safety Report 8822387 (Version 1)
Quarter: 2012Q4

REPORT INFORMATION
  Report Type: 
  Country: AU (occurrence: AU)
  Receive Date: 20121003
  Receipt Date: 20121003
  Transmission Date: 20130627
  Serious: Yes (Hospitalization, Other)
  Sender: FDA-Public Use
  Company Number: AU-009507513-2012SP033731

PATIENT

DRUGS (3)
  1. SAPHRIS [Suspect]
     Indication: BIPOLAR I DISORDER
     Dosage: 5 mg, QD
     Route: 060
  2. SAPHRIS [Suspect]
     Indication: AFFECTIVE DISORDER
     Dosage: 5 mg, BID
     Route: 060
  3. SAPHRIS [Suspect]
     Dosage: 10 mg, BID
     Route: 060

REACTIONS (2)
  - Tachycardia [Not Recovered/Not Resolved]
  - Underdose [Unknown]
